FAERS Safety Report 20859498 (Version 2)
Quarter: 2022Q2

REPORT INFORMATION
  Report Type: Spontaneous
  Country: IN (occurrence: IN)
  Receive Date: 20220523
  Receipt Date: 20220628
  Transmission Date: 20220721
  Serious: No
  Sender: FDA-Public Use
  Company Number: IN-LUPIN PHARMACEUTICALS INC.-2022-07303

PATIENT
  Sex: Female

DRUGS (1)
  1. CLOBAZAM [Suspect]
     Active Substance: CLOBAZAM
     Indication: Epilepsy
     Dosage: 10 MG, QD, DOSAGE: AT BEDTIME
     Route: 065

REACTIONS (1)
  - Exposure during pregnancy [Unknown]
